FAERS Safety Report 5156075-8 (Version None)
Quarter: 2006Q4

REPORT INFORMATION
  Report Type: 
  Country: None (occurrence: None)
  Receive Date: 20061114
  Receipt Date: 20061102
  Transmission Date: 20070319
  Serious: Yes (Other)
  Sender: FDA-Public Use
  Company Number: 31949

PATIENT
  Age: 47 Year
  Sex: Male
  Weight: 161 kg

DRUGS (1)
  1. DICYCLOMINE HCL [Suspect]
     Indication: ABDOMINAL PAIN UPPER
     Dosage: 10MG/IV X1
     Route: 042
     Dates: start: 20061102

REACTIONS (1)
  - INCORRECT ROUTE OF DRUG ADMINISTRATION [None]
